FAERS Safety Report 6107789-4 (Version None)
Quarter: 2009Q1

REPORT INFORMATION
  Report Type: 
  Country: None (occurrence: None)
  Receive Date: 20090309
  Receipt Date: 20090302
  Transmission Date: 20090719
  Serious: Yes (Other)
  Sender: FDA-Public Use
  Company Number: B0559951A

PATIENT
  Sex: Female
  Weight: 62 kg

DRUGS (5)
  1. REQUIP [Suspect]
     Indication: DRUG USE FOR UNKNOWN INDICATION
     Dosage: 1.5MG PER DAY
     Route: 048
     Dates: start: 20080825
  2. SINEMET [Suspect]
     Indication: PARKINSON'S DISEASE
     Dosage: 125MG THREE TIMES PER DAY
     Route: 065
     Dates: start: 20070523
  3. ACETYLSALICYLZUUR [Concomitant]
     Indication: THROMBOSIS PROPHYLAXIS
     Dosage: 80MG PER DAY
     Route: 065
     Dates: start: 20070316
  4. AMITRIPTYLINE [Concomitant]
     Indication: PAIN
     Dosage: 10MG PER DAY
     Route: 048
     Dates: start: 20070807
  5. LIPITOR [Concomitant]
     Dosage: 20MG PER DAY
     Route: 065
     Dates: start: 20070312

REACTIONS (1)
  - VISION BLURRED [None]
